FAERS Safety Report 11111963 (Version 1)
Quarter: 2015Q2

REPORT INFORMATION
  Report Type: Spontaneous
  Country: US (occurrence: None)
  Receive Date: 20150513
  Receipt Date: 20150513
  Transmission Date: 20150821
  Serious: No
  Sender: FDA-Public Use
  Company Number: None

PATIENT
  Age: 55 Year
  Sex: Female

DRUGS (1)
  1. AFINITOR [Suspect]
     Active Substance: EVEROLIMUS
     Indication: BREAST CANCER
     Route: 048
     Dates: start: 20150429, end: 20150512

REACTIONS (18)
  - Chills [None]
  - Dysphonia [None]
  - Epistaxis [None]
  - Rhinorrhoea [None]
  - Stomatitis [None]
  - Pruritus [None]
  - Nausea [None]
  - Dizziness [None]
  - Pain in extremity [None]
  - Asthenia [None]
  - Dry mouth [None]
  - Hypoaesthesia [None]
  - Fatigue [None]
  - Acne [None]
  - Paraesthesia [None]
  - Nasal congestion [None]
  - Dysgeusia [None]
  - Muscle spasms [None]

NARRATIVE: CASE EVENT DATE: 20150429
